FAERS Safety Report 7081154-8 (Version None)
Quarter: 2010Q4

REPORT INFORMATION
  Report Type: 
  Country: None (occurrence: None)
  Receive Date: 20101103
  Receipt Date: 20101025
  Transmission Date: 20110411
  Serious: Yes (Hospitalization)
  Sender: FDA-Public Use
  Company Number: B0681414A

PATIENT
  Sex: Male

DRUGS (2)
  1. ROPINIROLE HYDROCHLORIDE [Suspect]
     Indication: RESTLESS LEGS SYNDROME
     Dosage: 1MG PER DAY
     Route: 048
     Dates: start: 20100701, end: 20101023
  2. NEURONTIN [Concomitant]
     Indication: EPILEPSY
     Route: 065

REACTIONS (8)
  - ABNORMAL BEHAVIOUR [None]
  - AMNESIA [None]
  - COMPULSIVE SHOPPING [None]
  - DEPERSONALISATION [None]
  - DISINHIBITION [None]
  - HEADACHE [None]
  - SYNCOPE [None]
  - TACHYCARDIA [None]
